FAERS Safety Report 9716902 (Version 2)
Quarter: 2015Q3

REPORT INFORMATION
  Report Type: Spontaneous
  Country: US (occurrence: US)
  Receive Date: 20131127
  Receipt Date: 20150803
  Transmission Date: 20151125
  Serious: No
  Sender: FDA-Public Use
  Company Number: US-GILEAD-2009-0019922

PATIENT
  Age: 75 Year
  Sex: Female
  Weight: 54.43 kg

DRUGS (16)
  1. CLINDAMYCIN [Concomitant]
     Active Substance: CLINDAMYCIN\CLINDAMYCIN PHOSPHATE
     Route: 048
  2. FLOVENT [Concomitant]
     Active Substance: FLUTICASONE PROPIONATE
     Route: 055
  3. LETAIRIS [Suspect]
     Active Substance: AMBRISENTAN
     Indication: PULMONARY ARTERIAL HYPERTENSION
     Route: 048
     Dates: start: 20080513
  4. NORVASC [Concomitant]
     Active Substance: AMLODIPINE BESYLATE
     Route: 048
  5. IMODIUM AD [Concomitant]
     Active Substance: LOPERAMIDE HYDROCHLORIDE
     Route: 048
  6. PRILOSEC [Concomitant]
     Active Substance: OMEPRAZOLE MAGNESIUM
     Route: 048
  7. PARACETAMOL/HYDROCODONE BITARTRATE [Concomitant]
     Route: 048
  8. CYTOMEL [Concomitant]
     Active Substance: LIOTHYRONINE SODIUM
     Route: 048
  9. SYNTHROID [Concomitant]
     Active Substance: LEVOTHYROXINE SODIUM
     Route: 048
  10. REVATIO [Concomitant]
     Active Substance: SILDENAFIL CITRATE
     Route: 048
  11. ATROVENT [Concomitant]
     Active Substance: IPRATROPIUM BROMIDE
     Route: 055
  12. SEREVENT DISKUS [Concomitant]
     Active Substance: SALMETEROL XINAFOATE
     Route: 055
  13. PREDNISONE. [Concomitant]
     Active Substance: PREDNISONE
     Route: 048
  14. OXYGEN. [Concomitant]
     Active Substance: OXYGEN
     Route: 055
  15. FOSAMAX [Concomitant]
     Active Substance: ALENDRONATE SODIUM
     Route: 048
  16. ALBUTEROL INHALER [Concomitant]
     Active Substance: ALBUTEROL
     Route: 055

REACTIONS (6)
  - Visual impairment [Unknown]
  - Headache [Unknown]
  - Abdominal discomfort [Unknown]
  - Constipation [Unknown]
  - Nasal congestion [Unknown]
  - Hot flush [Unknown]
